FAERS Safety Report 5803768-2 (Version None)
Quarter: 2008Q3

REPORT INFORMATION
  Report Type: 
  Country: None (occurrence: None)
  Receive Date: 20080708
  Receipt Date: 20080328
  Transmission Date: 20090109
  Serious: No
  Sender: FDA-Public Use
  Company Number: US-AMGEN-KDL271650

PATIENT
  Sex: Female

DRUGS (3)
  1. KINERET [Suspect]
     Indication: RHEUMATOID ARTHRITIS
     Route: 058
     Dates: start: 20010101, end: 20080305
  2. METHOTREXATE [Concomitant]
     Dates: start: 20010101
  3. SULFASALAZINE [Concomitant]
     Route: 048
     Dates: start: 19940101

REACTIONS (2)
  - BURNING SENSATION [None]
  - THERAPEUTIC RESPONSE DECREASED [None]
